FAERS Safety Report 13022398 (Version 2)
Quarter: 2017Q1

REPORT INFORMATION
  Report Type: Spontaneous
  Country: US (occurrence: US)
  Receive Date: 20161213
  Receipt Date: 20170202
  Transmission Date: 20170428
  Serious: Yes (Other)
  Sender: FDA-Public Use
  Company Number: US-MALLINCKRODT-T201606313

PATIENT
  Age: 75 Year
  Sex: Male
  Weight: 90 kg

DRUGS (32)
  1. FUROSEMIDE. [Concomitant]
     Active Substance: FUROSEMIDE
     Dosage: 40 MG BID
  2. RITUXAN [Concomitant]
     Active Substance: RITUXIMAB
     Dosage: ^1000 EVERY 6 MONTHS^ (FEB AND SEP)
  3. POTASSIUM CHLORIDE. [Concomitant]
     Active Substance: POTASSIUM CHLORIDE
     Dosage: 20 MEQ TWO PER DAY
  4. GLUCOSAMINE [Concomitant]
     Active Substance: GLUCOSAMINE
     Dosage: 120 MG QD
  5. AMLODIPINE [Concomitant]
     Active Substance: AMLODIPINE BESYLATE
     Dosage: 2.5 MG QD
  6. DULOXETINE. [Concomitant]
     Active Substance: DULOXETINE
     Dosage: 60 MG QD WITH DINNER
  7. VITAMIN D [Concomitant]
     Active Substance: CHOLECALCIFEROL
     Dosage: 50,000 IU PER WEEK
  8. VITAMIN B12 [Concomitant]
     Active Substance: CYANOCOBALAMIN
     Dosage: 1 CC INJECTION EVERY 4 WEEKS
  9. ALLOPURINOL. [Concomitant]
     Active Substance: ALLOPURINOL
     Dosage: 300 MG QD
  10. PANTOPRAZOLE [Concomitant]
     Active Substance: PANTOPRAZOLE SODIUM
     Dosage: 40 MG BID
  11. TESTOSTERONE. [Concomitant]
     Active Substance: TESTOSTERONE
     Dosage: 200 MG INJECTION EVERY 3 WEEKS
  12. OXYGEN. [Concomitant]
     Active Substance: OXYGEN
     Dosage: 2 L
  13. VITAMIN C [Concomitant]
     Active Substance: ASCORBIC ACID
     Dosage: 1000 MG QD
  14. H.P. ACTHAR [Suspect]
     Active Substance: CORTICOTROPIN
     Indication: RHEUMATOID ARTHRITIS
     Dosage: 80 UNITS TWICE WEEKLY
     Route: 058
     Dates: start: 201606
  15. H.P. ACTHAR [Suspect]
     Active Substance: CORTICOTROPIN
     Dosage: 80U/1ML,  TWICE WEEKLY
     Route: 030
     Dates: start: 20161120
  16. PREDNISONE. [Concomitant]
     Active Substance: PREDNISONE
     Dosage: 5 MG BID
  17. TERAZOSIN [Concomitant]
     Active Substance: TERAZOSIN\TERAZOSIN HYDROCHLORIDE
     Dosage: 5 MG QD
  18. VITAMIN B6 [Concomitant]
     Active Substance: PYRIDOXINE HYDROCHLORIDE
     Dosage: 200 MG QD
  19. FISH OIL [Concomitant]
     Active Substance: FISH OIL
     Dosage: ^1000 QD^
  20. FOLIC ACID. [Concomitant]
     Active Substance: FOLIC ACID
     Dosage: 1 MG, TWO TABLETS QD
  21. NEURONTIN [Concomitant]
     Active Substance: GABAPENTIN
     Dosage: 600 MG TID
  22. SYMBICORT [Concomitant]
     Active Substance: BUDESONIDE\FORMOTEROL FUMARATE DIHYDRATE
     Dosage: 2 PUFFS BID
  23. IMMUNE GLOBULIN NOS [Concomitant]
     Active Substance: IMMUNE GLOBULIN NOS
     Dosage: INFUSION, DOSING UNKNOWN
  24. VITAMIN E [Concomitant]
     Active Substance: .ALPHA.-TOCOPHEROL
     Dosage: 400 IU QD
  25. FIBERCON [Concomitant]
     Active Substance: CALCIUM POLYCARBOPHIL
     Dosage: ^1 QD^
  26. HYDROMORPHONE HYDROCHLORIDE. [Concomitant]
     Active Substance: HYDROMORPHONE HYDROCHLORIDE
     Dosage: 0.998 ML WITH BOLUS OF 0.09 VIA ^PAIN PUMP^
  27. BUPIVACAINE. [Concomitant]
     Active Substance: BUPIVACAINE
     Dosage: ^3.99 VIA PAIN PUMP^
  28. WARFARIN [Concomitant]
     Active Substance: WARFARIN
     Dosage: 2.0 - 2.5 MG QD, AS DIRECTED
  29. METOPROLOL. [Concomitant]
     Active Substance: METOPROLOL
     Dosage: 10 MG BID
  30. TRAZODONE [Concomitant]
     Active Substance: TRAZODONE HYDROCHLORIDE
     Dosage: 100 MG QHS
  31. FLUTICASONE. [Concomitant]
     Active Substance: FLUTICASONE
     Dosage: 50 MCG , 1 SQUIRT MORNING AND NIGHT
  32. CALCIUM [Concomitant]
     Active Substance: CALCIUM
     Dosage: 1500 MG QD

REACTIONS (4)
  - Adverse event [Unknown]
  - Arthralgia [Not Recovered/Not Resolved]
  - Drug ineffective [Not Recovered/Not Resolved]
  - Prothrombin time prolonged [Not Recovered/Not Resolved]

NARRATIVE: CASE EVENT DATE: 201611
